FAERS Safety Report 5469869-6 (Version None)
Quarter: 2007Q3

REPORT INFORMATION
  Report Type: 
  Country: None (occurrence: None)
  Receive Date: 20070927
  Receipt Date: 20070921
  Transmission Date: 20080115
  Serious: Yes (Other)
  Sender: FDA-Public Use
  Company Number: US-JNJFOC-20070904695

PATIENT
  Sex: Female
  Weight: 59.88 kg

DRUGS (4)
  1. REMICADE [Suspect]
     Indication: CROHN'S DISEASE
     Route: 042
  2. IMURAN [Concomitant]
  3. ASACOL [Concomitant]
  4. FOLIC ACID [Concomitant]

REACTIONS (2)
  - HERPES ZOSTER [None]
  - TRIGEMINAL NEURALGIA [None]
